FAERS Safety Report 14439804 (Version 1)
Quarter: 2018Q1

REPORT INFORMATION
  Report Type: Report from Study
  Country: GB (occurrence: GB)
  Receive Date: 20180125
  Receipt Date: 20180125
  Transmission Date: 20180509
  Serious: Yes (Hospitalization)
  Sender: FDA-Public Use
  Company Number: GB-ASTRAZENECA-2017SE04576

PATIENT
  Age: 31020 Day

DRUGS (5)
  1. RADIOTHERAPY [Suspect]
     Active Substance: RADIATION THERAPY
     Indication: OESOPHAGEAL CARCINOMA
     Route: 065
  2. FENTANYL. [Concomitant]
     Active Substance: FENTANYL
  3. BISOPROLOL [Concomitant]
     Active Substance: BISOPROLOL
  4. AZD2281 [Suspect]
     Active Substance: OLAPARIB
     Indication: OESOPHAGEAL CARCINOMA
     Route: 048
     Dates: start: 20161111, end: 20161216
  5. WARFARIN [Concomitant]
     Active Substance: WARFARIN

REACTIONS (1)
  - Radiation oesophagitis [Not Recovered/Not Resolved]

NARRATIVE: CASE EVENT DATE: 20180104
